FAERS Safety Report 17012615 (Version 5)
Quarter: 2020Q1

REPORT INFORMATION
  Report Type: Report from Study
  Country: None (occurrence: CO)
  Receive Date: 20191109
  Receipt Date: 20200312
  Transmission Date: 20200409
  Serious: Yes (Hospitalization, Other)
  Sender: FDA-Public Use
  Company Number: CO-ABBVIE-19K-036-2996588-00

PATIENT
  Age: 50 Year
  Sex: Male
  Weight: 51 kg

DRUGS (5)
  1. HUMIRA [Suspect]
     Active Substance: ADALIMUMAB
     Route: 058
  2. SULFASALAZINE. [Concomitant]
     Active Substance: SULFASALAZINE
     Indication: PRODUCT USED FOR UNKNOWN INDICATION
     Route: 048
  3. HUMIRA [Suspect]
     Active Substance: ADALIMUMAB
     Indication: ANKYLOSING SPONDYLITIS
     Route: 058
     Dates: end: 20191130
  4. HUMIRA [Suspect]
     Active Substance: ADALIMUMAB
     Indication: ANKYLOSING SPONDYLITIS
     Route: 058
     Dates: start: 20160220
  5. OMEPRAZOLE. [Concomitant]
     Active Substance: OMEPRAZOLE
     Indication: PRODUCT USED FOR UNKNOWN INDICATION
     Route: 048

REACTIONS (15)
  - Ocular hyperaemia [Recovering/Resolving]
  - Arthralgia [Not Recovered/Not Resolved]
  - Diarrhoea haemorrhagic [Recovering/Resolving]
  - Inflammation [Recovering/Resolving]
  - Therapeutic product effect decreased [Recovering/Resolving]
  - Pain [Recovering/Resolving]
  - Fall [Recovering/Resolving]
  - Arthralgia [Recovering/Resolving]
  - Arthritis [Not Recovered/Not Resolved]
  - Abdominal pain [Recovering/Resolving]
  - Neck pain [Recovering/Resolving]
  - Arthritis [Recovered/Resolved]
  - Arthralgia [Recovered/Resolved]
  - Bone marrow oedema [Not Recovered/Not Resolved]
  - Blindness [Recovering/Resolving]

NARRATIVE: CASE EVENT DATE: 201905
